FAERS Safety Report 5255761-9 (Version None)
Quarter: 2007Q1

REPORT INFORMATION
  Report Type: 
  Country: None (occurrence: None)
  Receive Date: 20070305
  Receipt Date: 20070223
  Transmission Date: 20070707
  Serious: Yes (Other)
  Sender: FDA-Public Use
  Company Number: US-PFIZER INC-2007015304

PATIENT
  Age: 76 Year
  Sex: Female
  Weight: 73.9 kg

DRUGS (4)
  1. LIPITOR [Suspect]
     Dates: start: 20051201, end: 20060101
  2. SYNTHROID [Concomitant]
  3. ATIVAN [Concomitant]
  4. ACCUPRIL [Concomitant]

REACTIONS (6)
  - ARTHRALGIA [None]
  - ASTHENIA [None]
  - MOTOR DYSFUNCTION [None]
  - MYALGIA [None]
  - PAIN IN EXTREMITY [None]
  - THYROID DISORDER [None]
